FAERS Safety Report 16371133 (Version 1)
Quarter: 2019Q3

REPORT INFORMATION
  Report Type: Spontaneous
  Country: US (occurrence: US)
  Receive Date: 20190529
  Receipt Date: 20190529
  Transmission Date: 20191004
  Serious: Yes (Other)
  Sender: FDA-Public Use
  Company Number: None

PATIENT
  Age: 61 Year
  Sex: Female
  Weight: 74.25 kg

DRUGS (1)
  1. BROAD SPECTRUM SPF 70 [Suspect]
     Active Substance: AVOBENZONE\HOMOSALATE\OCTISALATE\OCTOCRYLENE\OXYBENZONE
     Indication: PROPHYLAXIS
     Dosage: ?          OTHER FREQUENCY:EVERY 80 MINUTES;OTHER ROUTE:SKIN SUN PROTECTION?
     Dates: start: 20190527

REACTIONS (4)
  - Sunburn [None]
  - Drug ineffective [None]
  - Product quality issue [None]
  - Peripheral swelling [None]

NARRATIVE: CASE EVENT DATE: 20190527
